FAERS Safety Report 23484431 (Version 2)
Quarter: 2024Q1

REPORT INFORMATION
  Report Type: Spontaneous
  Country: CN (occurrence: CN)
  Receive Date: 20240206
  Receipt Date: 20240312
  Transmission Date: 20240410
  Serious: Yes (Hospitalization)
  Sender: FDA-Public Use
  Company Number: CN-NOVOPROD-1168923

PATIENT
  Age: 58 Year
  Sex: Male
  Weight: 80 kg

DRUGS (2)
  1. NOVOLIN R [Suspect]
     Active Substance: INSULIN HUMAN
     Indication: Type 2 diabetes mellitus
     Dosage: 45 IU, QD (20 U IN THE MORNING AND 25 U IN THE EVENING)
     Route: 058
     Dates: end: 202307
  2. DAPAGLIFLOZIN [Concomitant]
     Active Substance: DAPAGLIFLOZIN
     Indication: Type 2 diabetes mellitus
     Dosage: 1 DF 1 TABLET
     Dates: start: 202307

REACTIONS (2)
  - Blood glucose increased [Recovered/Resolved]
  - Insulin resistance [Recovered/Resolved]
